FAERS Safety Report 7967609-X (Version None)
Quarter: 2011Q4

REPORT INFORMATION
  Report Type: 
  Country: None (occurrence: None)
  Receive Date: 20111209
  Receipt Date: 20111207
  Transmission Date: 20120403
  Serious: Yes (Death)
  Sender: FDA-Public Use
  Company Number: GB-GENZYME-CLOF-1001880

PATIENT
  Sex: Male
  Weight: 78.75 kg

DRUGS (16)
  1. ORAMORPH SR [Concomitant]
     Indication: PRODUCT USED FOR UNKNOWN INDICATION
     Dosage: 10-15 MG, 4-6 HOURLY
     Route: 048
     Dates: start: 20070221, end: 20070228
  2. EVOLTRA [Suspect]
     Indication: ACUTE MYELOID LEUKAEMIA
     Dosage: 38 MG, QD
     Route: 065
     Dates: start: 20070222, end: 20070226
  3. ONDANSETRON [Concomitant]
     Indication: PRODUCT USED FOR UNKNOWN INDICATION
     Dosage: 8 MG, BD
     Route: 042
     Dates: start: 20070223, end: 20070301
  4. DIPROBASE [Concomitant]
     Indication: PRODUCT USED FOR UNKNOWN INDICATION
     Dosage: QDS
     Route: 061
     Dates: start: 20070223, end: 20070226
  5. METOCLOPRAMIDE [Concomitant]
     Dosage: 10-20 MG, TDS
     Route: 042
     Dates: start: 20070224, end: 20070301
  6. DOVONEX [Concomitant]
     Indication: PRODUCT USED FOR UNKNOWN INDICATION
     Dosage: BD
     Route: 061
     Dates: start: 20070223, end: 20070226
  7. METOCLOPRAMIDE [Concomitant]
     Indication: PRODUCT USED FOR UNKNOWN INDICATION
     Dosage: 10-20 MG, TDS
     Route: 048
     Dates: start: 20070224, end: 20070301
  8. CHLORHEXIDINE GLUCONATE [Concomitant]
     Indication: PRODUCT USED FOR UNKNOWN INDICATION
     Dosage: 10 ML, QDS
     Route: 048
     Dates: start: 20070213, end: 20070301
  9. POTASSIUM ACETATE [Concomitant]
     Indication: PRODUCT USED FOR UNKNOWN INDICATION
     Dosage: 2 TDS
     Route: 048
     Dates: start: 20070217, end: 20070301
  10. ALLOPURINOL [Concomitant]
     Indication: PRODUCT USED FOR UNKNOWN INDICATION
     Dosage: 300 MG, OD
     Route: 048
     Dates: start: 20070221, end: 20070301
  11. DIAZEPAM [Concomitant]
     Indication: PRODUCT USED FOR UNKNOWN INDICATION
     Dosage: 2 MG, BD
     Route: 048
     Dates: start: 20070223, end: 20070301
  12. MULTI-VITAMIN [Concomitant]
     Indication: PRODUCT USED FOR UNKNOWN INDICATION
     Dosage: 1 OD
     Route: 048
     Dates: start: 20070213, end: 20070301
  13. OMEPRAZOLE [Concomitant]
     Indication: PRODUCT USED FOR UNKNOWN INDICATION
     Dosage: 10 MG, OD
     Route: 048
     Dates: start: 20070213, end: 20070301
  14. VISCOTEARS [Concomitant]
     Indication: PRODUCT USED FOR UNKNOWN INDICATION
     Dosage: 1 UNK, QDS
     Route: 047
     Dates: start: 20070213, end: 20070302
  15. ITRACONAZOLE [Concomitant]
     Indication: PRODUCT USED FOR UNKNOWN INDICATION
     Dosage: 20 ML, BD
     Route: 048
     Dates: start: 20070213, end: 20070301
  16. ACETAMINOPHEN [Concomitant]
     Indication: PRODUCT USED FOR UNKNOWN INDICATION
     Dosage: 1 G, QDS
     Route: 048
     Dates: start: 20070213, end: 20070301

REACTIONS (7)
  - ACUTE MYELOID LEUKAEMIA [None]
  - BRONCHOPNEUMONIA [None]
  - PAIN [None]
  - DIARRHOEA [None]
  - BACTERIAL INFECTION [None]
  - GENERAL PHYSICAL HEALTH DETERIORATION [None]
  - ABDOMINAL PAIN [None]
